FAERS Safety Report 20197419 (Version 1)
Quarter: 2021Q4

REPORT INFORMATION
  Report Type: Report from Study
  Country: US (occurrence: US)
  Receive Date: 20211217
  Receipt Date: 20211217
  Transmission Date: 20220303
  Serious: Yes (Life-Threatening, Hospitalization, Other)
  Sender: FDA-Public Use
  Company Number: US-SUN PHARMACEUTICAL INDUSTRIES LTD-2021R1-319305

PATIENT
  Age: 15 Year
  Sex: Female

DRUGS (1)
  1. ACETAMINOPHEN [Suspect]
     Active Substance: ACETAMINOPHEN
     Indication: Product used for unknown indication
     Dosage: 20-30 TABLETS
     Route: 065

REACTIONS (6)
  - Liver injury [Unknown]
  - Acute kidney injury [Unknown]
  - Hypertension [Unknown]
  - Major depression [Unknown]
  - Toxicity to various agents [Unknown]
  - Intentional overdose [Unknown]
